APPROVED DRUG PRODUCT: TESTOSTERONE CYPIONATE
Active Ingredient: TESTOSTERONE CYPIONATE
Strength: 200MG/ML
Dosage Form/Route: INJECTABLE;INJECTION
Application: A040652 | Product #001
Applicant: RISING PHARMA HOLDING INC
Approved: Dec 11, 2006 | RLD: No | RS: No | Type: DISCN